FAERS Safety Report 24681199 (Version 1)
Quarter: 2024Q4

REPORT INFORMATION
  Report Type: Spontaneous
  Country: US (occurrence: US)
  Receive Date: 20241129
  Receipt Date: 20241129
  Transmission Date: 20250114
  Serious: No
  Sender: SANOFI AVENTIS
  Company Number: US-SA-2024SA345776

PATIENT
  Age: 71 Year
  Sex: Female

DRUGS (1)
  1. DUPIXENT [Suspect]
     Active Substance: DUPILUMAB
     Indication: Dermatitis atopic
     Dosage: 300 MG, QOW
     Route: 058
     Dates: end: 202409

REACTIONS (9)
  - Sleep disorder [Unknown]
  - Skin fissures [Unknown]
  - Haemorrhage [Unknown]
  - Dry skin [Unknown]
  - Abdominal pain upper [Unknown]
  - Pruritus [Unknown]
  - Dry eye [Unknown]
  - Eye pruritus [Unknown]
  - Condition aggravated [Unknown]

NARRATIVE: CASE EVENT DATE: 20241101
